FAERS Safety Report 8829181 (Version 3)
Quarter: 2012Q4

REPORT INFORMATION
  Report Type: 
  Country: US (occurrence: US)
  Receive Date: 20121008
  Receipt Date: 20121018
  Transmission Date: 20130627
  Serious: Yes (Other)
  Sender: FDA-Public Use
  Company Number: CHPA2012US020910

PATIENT
  Sex: Female

DRUGS (1)
  1. VOLTAREN GEL [Suspect]
     Indication: ARTHRITIS
     Dosage: UNK, QID
     Route: 061
     Dates: start: 2010

REACTIONS (9)
  - Lung infection [Recovered/Resolved]
  - Cough [Recovered/Resolved]
  - Memory impairment [Recovered/Resolved]
  - Concomitant disease aggravated [Recovered/Resolved]
  - Therapeutic response unexpected [Unknown]
  - Malaise [Recovered/Resolved]
  - Therapeutic response decreased [Unknown]
  - Wrong technique in drug usage process [Unknown]
  - Drug administered at inappropriate site [Unknown]
